FAERS Safety Report 7115098-X (Version None)
Quarter: 2010Q4

REPORT INFORMATION
  Report Type: 
  Country: None (occurrence: None)
  Receive Date: 20101122
  Receipt Date: 20101115
  Transmission Date: 20110411
  Serious: Yes (Death)
  Sender: FDA-Public Use
  Company Number: US-CELGENEUS-163-21880-10102831

PATIENT
  Sex: Female

DRUGS (6)
  1. REVLIMID [Suspect]
     Route: 048
     Dates: start: 20100913, end: 20101022
  2. DIGOXIN [Concomitant]
     Indication: ATRIAL FIBRILLATION
     Route: 048
  3. NASONEX [Concomitant]
     Route: 065
  4. LORAZEPAM [Concomitant]
     Indication: ANXIETY
     Route: 048
  5. OXYGEN [Concomitant]
     Route: 065
     Dates: start: 20020101
  6. ZOLOFT [Concomitant]
     Indication: DEPRESSION
     Route: 065

REACTIONS (2)
  - CHRONIC OBSTRUCTIVE PULMONARY DISEASE [None]
  - RESPIRATORY FAILURE [None]
